FAERS Safety Report 24634148 (Version 1)
Quarter: 2024Q4

REPORT INFORMATION
  Report Type: Spontaneous
  Country: RU (occurrence: RU)
  Receive Date: 20241119
  Receipt Date: 20241119
  Transmission Date: 20250115
  Serious: Yes (Other)
  Sender: HETERO
  Company Number: RU-AMAROX PHARMA-HET2024RU04191

PATIENT
  Age: 38 Year
  Sex: Female
  Weight: 106 kg

DRUGS (1)
  1. LEVETIRACETAM [Suspect]
     Active Substance: LEVETIRACETAM
     Indication: Epilepsy
     Dosage: 750 MILLIGRAM, BID
     Route: 048
     Dates: start: 20241105, end: 20241106

REACTIONS (5)
  - Disturbance in attention [Recovering/Resolving]
  - Psychogenic tremor [Recovering/Resolving]
  - Body dysmorphic disorder [Recovering/Resolving]
  - Epileptic aura [Recovering/Resolving]
  - Confusional state [Recovering/Resolving]

NARRATIVE: CASE EVENT DATE: 20241106
